FAERS Safety Report 4512805-7 (Version None)
Quarter: 2004Q4

REPORT INFORMATION
  Report Type: 
  Country: None (occurrence: None)
  Receive Date: 20041119
  Receipt Date: 20041119
  Transmission Date: 20050328
  Serious: Yes (Other)
  Sender: FDA-Public Use
  Company Number: None

PATIENT
  Age: 86 Year
  Sex: Female
  Weight: 62.1428 kg

DRUGS (1)
  1. DILTIAZEM HCL [Suspect]
     Dosage: 1 TAB QD PO
     Route: 048
     Dates: start: 20040908

REACTIONS (2)
  - DYSPNOEA [None]
  - TACHYCARDIA [None]
